FAERS Safety Report 7013711-9 (Version None)
Quarter: 2010Q3

REPORT INFORMATION
  Report Type: 
  Country: None (occurrence: None)
  Receive Date: 20100924
  Receipt Date: 20100920
  Transmission Date: 20110219
  Serious: Yes (Other)
  Sender: FDA-Public Use
  Company Number: US-JNJCH-2010021467

PATIENT
  Sex: Female

DRUGS (1)
  1. BENGAY ULTRA STRENGTH [Suspect]
     Indication: SINUS HEADACHE
     Dosage: TEXT:ONCE
     Route: 061

REACTIONS (3)
  - APPLICATION SITE BURN [None]
  - APPLICATION SITE IRRITATION [None]
  - OFF LABEL USE [None]
